FAERS Safety Report 6134888-3 (Version None)
Quarter: 2009Q1

REPORT INFORMATION
  Report Type: 
  Country: None (occurrence: None)
  Receive Date: 20090327
  Receipt Date: 20090316
  Transmission Date: 20090719
  Serious: Yes (Hospitalization)
  Sender: FDA-Public Use
  Company Number: JP-PFIZER INC-2009175303

PATIENT

DRUGS (7)
  1. ALDACTONE [Suspect]
     Indication: CARDIAC FAILURE
     Dosage: 25 MG, 1X/DAY
     Route: 048
     Dates: start: 20090110
  2. IMIDAPRIL HYDROCHLORIDE [Suspect]
     Indication: CARDIAC FAILURE
     Route: 048
     Dates: start: 20090117, end: 20090124
  3. NU LOTAN [Suspect]
     Indication: CARDIAC FAILURE
     Route: 048
     Dates: start: 20090207, end: 20090216
  4. CLAFORAN [Concomitant]
     Route: 042
     Dates: start: 20090103, end: 20090109
  5. LASIX [Concomitant]
     Dosage: UNK
     Dates: start: 20090104, end: 20090126
  6. MYSLEE [Concomitant]
     Dates: start: 20090107, end: 20090126
  7. MERCAZOLE [Concomitant]
     Dosage: UNK
     Route: 048
     Dates: start: 20090119

REACTIONS (2)
  - GRANULOCYTE COUNT DECREASED [None]
  - LYMPHOCYTE COUNT INCREASED [None]
